FAERS Safety Report 24030767 (Version 1)
Quarter: 2024Q2

REPORT INFORMATION
  Report Type: Spontaneous
  Country: US (occurrence: US)
  Receive Date: 20240628
  Receipt Date: 20240628
  Transmission Date: 20240716
  Serious: No
  Sender: FDA-Public Use
  Company Number: US-PFIZER INC-202400202158

PATIENT
  Age: 69 Year
  Sex: Female

DRUGS (3)
  1. NORPACE CR [Suspect]
     Active Substance: DISOPYRAMIDE PHOSPHATE
     Indication: Hypertrophic cardiomyopathy
     Dosage: UNK UNK, 2X/DAY
  2. NORPACE [Suspect]
     Active Substance: DISOPYRAMIDE PHOSPHATE
     Indication: Hypertrophic cardiomyopathy
     Dosage: 2 CAPSULES THREE TIMES A DAY
  3. DISOPYRAMIDE [Suspect]
     Active Substance: DISOPYRAMIDE
     Indication: Hypertrophic cardiomyopathy
     Dosage: 6 CAPSULES DAILY(2 CAPSULES THREE TIMES A DAY)

REACTIONS (3)
  - Heart rate abnormal [Unknown]
  - Weight decreased [Unknown]
  - Off label use [Unknown]
